FAERS Safety Report 16228949 (Version 1)
Quarter: 2019Q2

REPORT INFORMATION
  Report Type: Spontaneous
  Country: JP (occurrence: JP)
  Receive Date: 20190423
  Receipt Date: 20190423
  Transmission Date: 20190711
  Serious: Yes (Hospitalization, Other)
  Sender: FDA-Public Use
  Company Number: JP-JNJFOC-20190432449

PATIENT
  Age: 9 Decade
  Sex: Female
  Weight: 41 kg

DRUGS (8)
  1. GLIMEPIRIDE. [Concomitant]
     Active Substance: GLIMEPIRIDE
     Route: 065
  2. XARELTO [Suspect]
     Active Substance: RIVAROXABAN
     Indication: ATRIAL FIBRILLATION
     Route: 048
     Dates: start: 201706
  3. ONGLYZA [Concomitant]
     Active Substance: SAXAGLIPTIN HYDROCHLORIDE
     Route: 065
  4. ARTIST [Concomitant]
     Active Substance: CARVEDILOL
     Route: 065
  5. FUROSEMIDE. [Concomitant]
     Active Substance: FUROSEMIDE
     Route: 065
  6. HALFDIGOXIN [Concomitant]
     Active Substance: DIGOXIN
     Route: 065
  7. LANSOPRAZOLE. [Concomitant]
     Active Substance: LANSOPRAZOLE
     Route: 065
  8. JANUVIA [Concomitant]
     Active Substance: SITAGLIPTIN PHOSPHATE
     Route: 065

REACTIONS (4)
  - Secondary hypothyroidism [Unknown]
  - Asthma [Unknown]
  - Cerebral haemorrhage [Recovering/Resolving]
  - Cardiac failure congestive [Unknown]

NARRATIVE: CASE EVENT DATE: 2017
